FAERS Safety Report 9722812 (Version 2)
Quarter: 2013Q4

REPORT INFORMATION
  Report Type: Report from Study
  Country: NL (occurrence: NL)
  Receive Date: 20131202
  Receipt Date: 20131202
  Transmission Date: 20140711
  Serious: Yes (Other)
  Sender: FDA-Public Use
  Company Number: NL-ABBVIE-11P-114-0877912-00

PATIENT
  Age: 49 Year
  Sex: Male
  Weight: 77 kg

DRUGS (1)
  1. HUMIRA 40 MG/0.8 ML PEN [Suspect]
     Indication: ANKYLOSING SPONDYLITIS
     Route: 058
     Dates: start: 20110624, end: 20111012

REACTIONS (1)
  - Deafness unilateral [Recovered/Resolved]
